FAERS Safety Report 21021142 (Version 1)
Quarter: 2022Q2

REPORT INFORMATION
  Report Type: Other
  Country: CN (occurrence: CN)
  Receive Date: 20220629
  Receipt Date: 20220629
  Transmission Date: 20220721
  Serious: Yes (Other)
  Sender: FDA-Public Use
  Company Number: CN-BoehringerIngelheim-2022-BI-177141

PATIENT
  Age: 74 Year
  Sex: Male

DRUGS (2)
  1. ALTEPLASE [Suspect]
     Active Substance: ALTEPLASE
     Indication: Cerebral infarction
     Dosage: INTRAVENOUS INJECTION 0.9MG/KG
     Route: 042
  2. ALTEPLASE [Suspect]
     Active Substance: ALTEPLASE
     Indication: Thrombolysis
     Dosage: INTRAVENOUS DRIP 0.9MG/KG
     Route: 042

REACTIONS (3)
  - Vasogenic cerebral oedema [Recovered/Resolved]
  - Vertebrobasilar insufficiency [Recovered/Resolved]
  - Dyspnoea [Recovered/Resolved]
